FAERS Safety Report 26074483 (Version 1)
Quarter: 2025Q4

REPORT INFORMATION
  Report Type: Spontaneous
  Country: US (occurrence: None)
  Receive Date: 20251120
  Receipt Date: 20251120
  Transmission Date: 20260118
  Serious: Yes (Other)
  Sender: FDA-CTU
  Company Number: None

PATIENT
  Age: 25 Year
  Sex: Female

DRUGS (1)
  1. DOTTI [Suspect]
     Active Substance: ESTRADIOL
     Dosage: OTHER QUANTITY : 0.05MG 2 PATCHES;?FREQUENCY : TWICE A WEEK;?

REACTIONS (9)
  - Drug ineffective [None]
  - Blood oestrogen decreased [None]
  - Asthenia [None]
  - Insomnia [None]
  - Nonspecific reaction [None]
  - Fatigue [None]
  - Menstruation irregular [None]
  - Mood altered [None]
  - Depression [None]
